FAERS Safety Report 18570981 (Version 1)
Quarter: 2020Q4

REPORT INFORMATION
  Report Type: Spontaneous
  Country: US (occurrence: US)
  Receive Date: 20201202
  Receipt Date: 20201202
  Transmission Date: 20210114
  Serious: No
  Sender: FDA-Public Use
  Company Number: US-NOVEN PHARMACEUTICALS, INC.-2020US003223

PATIENT
  Age: 57 Year
  Sex: Female
  Weight: 98.87 kg

DRUGS (2)
  1. AGX ESTRADIOL FOR MINIVELLE [Suspect]
     Active Substance: ESTRADIOL
     Indication: HOT FLUSH
     Dosage: 0.05 MG
     Route: 062
     Dates: start: 2019, end: 202001
  2. AGX ESTRADIOL FOR MINIVELLE [Suspect]
     Active Substance: ESTRADIOL
     Indication: NIGHT SWEATS
     Dosage: 0.05 MG
     Route: 062
     Dates: start: 2020

REACTIONS (9)
  - Weight increased [Not Recovered/Not Resolved]
  - Mood swings [Unknown]
  - Off label use [Not Recovered/Not Resolved]
  - Fatigue [Unknown]
  - Insomnia [Unknown]
  - Product quality issue [Recovered/Resolved]
  - Irritability [Unknown]
  - Therapeutic product ineffective [Unknown]
  - Feeling abnormal [Not Recovered/Not Resolved]

NARRATIVE: CASE EVENT DATE: 2019
